FAERS Safety Report 10833344 (Version 2)
Quarter: 2015Q2

REPORT INFORMATION
  Report Type: Spontaneous
  Country: JP (occurrence: JP)
  Receive Date: 20150219
  Receipt Date: 20150602
  Transmission Date: 20150821
  Serious: Yes (Death)
  Sender: FDA-Public Use
  Company Number: JP-TEVA-541184ISR

PATIENT
  Age: 81 Year
  Sex: Female
  Weight: 51 kg

DRUGS (5)
  1. E-FEN BUCCAL (FENTANYL CITRATE) [Suspect]
     Active Substance: FENTANYL CITRATE
     Dosage: DAILY DOSE: 200 - 600 MICROGRAM
     Route: 002
     Dates: start: 20140706, end: 20140710
  2. E-FEN BUCCAL (FENTANYL CITRATE) [Suspect]
     Active Substance: FENTANYL CITRATE
     Indication: BREAKTHROUGH PAIN
     Dosage: 50 MICROGRAM DAILY; DAILY DOSE 50 MICROGRAM
     Route: 002
     Dates: start: 20140923, end: 20140923
  3. E-FEN BUCCAL (FENTANYL CITRATE) [Suspect]
     Active Substance: FENTANYL CITRATE
     Dosage: 600 MICROGRAM DAILY;
     Route: 002
     Dates: start: 20140703, end: 20140704
  4. (1)-1 FENTOS (FENTANYL CITRATE) [Concomitant]
     Indication: CANCER PAIN
     Route: 062
     Dates: start: 20140922, end: 20140925
  5. E-FEN BUCCAL (FENTANYL CITRATE) [Suspect]
     Active Substance: FENTANYL CITRATE
     Dosage: 800 MICROGRAM DAILY;
     Route: 002
     Dates: start: 20140705, end: 20140705

REACTIONS (3)
  - Rectal cancer [Fatal]
  - Colon cancer [Fatal]
  - Condition aggravated [Fatal]

NARRATIVE: CASE EVENT DATE: 20140925
